FAERS Safety Report 14226633 (Version 1)
Quarter: 2017Q4

REPORT INFORMATION
  Report Type: Spontaneous
  Country: CA (occurrence: CA)
  Receive Date: 20171127
  Receipt Date: 20171127
  Transmission Date: 20180321
  Serious: Yes (Death)
  Sender: FDA-Public Use
  Company Number: CA-PFIZER INC-2017506692

PATIENT
  Age: 57 Year
  Sex: Female

DRUGS (6)
  1. VITAMIN D3 [Concomitant]
     Active Substance: CHOLECALCIFEROL
     Dosage: 400 IU, QAM+QPM
  2. LETROZOLE. [Concomitant]
     Active Substance: LETROZOLE
     Dosage: 2.5 MG, DAILY
  3. IBRANCE [Suspect]
     Active Substance: PALBOCICLIB
     Dosage: 1 DF, DAILY (21 DAYS AND OFF FOR 7 DAYS)
     Route: 048
     Dates: start: 20170518
  4. OXYCODONE [Concomitant]
     Active Substance: OXYCODONE
     Dosage: 5/325 MG EVERY 4-5 HRS AS NEEDED
  5. CALCIUM CARBONATE. [Concomitant]
     Active Substance: CALCIUM CARBONATE
     Dosage: 500 MG, 2X/DAY QAM+QPM
  6. RISEDRONATE [Concomitant]
     Active Substance: RISEDRONATE SODIUM
     Dosage: 1 DF, DAILY

REACTIONS (1)
  - Death [Fatal]
